FAERS Safety Report 4277179-8 (Version None)
Quarter: 2004Q1

REPORT INFORMATION
  Report Type: 
  Country: None (occurrence: None)
  Receive Date: 20040120
  Receipt Date: 20040109
  Transmission Date: 20041129
  Serious: Yes (Death)
  Sender: FDA-Public Use
  Company Number: JP-JNJFOC-20040102166

PATIENT
  Age: 51 Year
  Sex: Female

DRUGS (2)
  1. FENTANYL [Suspect]
     Indication: CANCER PAIN
     Dosage: 5 + 10 MG, 1 IN 3 DAY, TRANSDERMAL
     Route: 062
     Dates: start: 20030721, end: 20030727
  2. FENTANYL [Suspect]
     Indication: CANCER PAIN
     Dosage: 5 + 10 MG, 1 IN 3 DAY, TRANSDERMAL
     Route: 062
     Dates: start: 20030727, end: 20030727

REACTIONS (2)
  - GASTRIC CANCER [None]
  - MALIGNANT NEOPLASM PROGRESSION [None]
